FAERS Safety Report 6592541-6 (Version None)
Quarter: 2010Q1

REPORT INFORMATION
  Report Type: 
  Country: None (occurrence: None)
  Receive Date: 20100221
  Receipt Date: 20091113
  Transmission Date: 20100710
  Serious: No
  Sender: FDA-Public Use
  Company Number: US-ALLERGAN-0914724US

PATIENT
  Age: 31 Year
  Sex: Female
  Weight: 45.351 kg

DRUGS (1)
  1. BOTOX COSMETIC [Suspect]
     Indication: SKIN WRINKLING
     Dosage: 14 UNITS, SINGLE
     Route: 030
     Dates: start: 20091022, end: 20091022

REACTIONS (2)
  - HYPOAESTHESIA ORAL [None]
  - INTRANASAL HYPOAESTHESIA [None]
